FAERS Safety Report 6545370-3 (Version None)
Quarter: 2010Q1

REPORT INFORMATION
  Report Type: 
  Country: None (occurrence: None)
  Receive Date: 20100121
  Receipt Date: 20100113
  Transmission Date: 20100710
  Serious: Yes (Death)
  Sender: FDA-Public Use
  Company Number: US-MERCK-1001USA01578

PATIENT
  Age: 72 Year
  Sex: Male

DRUGS (7)
  1. CORTONE [Suspect]
     Route: 048
  2. CLONIDINE [Suspect]
     Route: 065
  3. AMLODIPINE [Suspect]
     Route: 065
  4. PHENYTOIN [Suspect]
     Route: 065
  5. SERTRALINE HYDROCHLORIDE [Suspect]
     Route: 065
  6. HYDROXYZINE [Suspect]
     Route: 065
  7. CARBAMAZEPINE [Suspect]
     Route: 065

REACTIONS (2)
  - COMPLETED SUICIDE [None]
  - OVERDOSE [None]
